FAERS Safety Report 12284551 (Version 1)
Quarter: 2016Q2

REPORT INFORMATION
  Report Type: Spontaneous
  Country: US (occurrence: US)
  Receive Date: 20160420
  Receipt Date: 20160420
  Transmission Date: 20160815
  Serious: No
  Sender: FDA-Public Use
  Company Number: US-TEVA-634064USA

PATIENT
  Sex: Male
  Weight: 99.43 kg

DRUGS (9)
  1. NIACIN. [Suspect]
     Active Substance: NIACIN
     Route: 065
     Dates: start: 2001
  2. VITAMIN D [Concomitant]
     Active Substance: CHOLECALCIFEROL
     Indication: ROUTINE HEALTH MAINTENANCE
     Dosage: 1 TAB
     Dates: start: 201301
  3. LUNESTA [Concomitant]
     Active Substance: ESZOPICLONE
     Indication: INSOMNIA
     Dosage: 3 MILLIGRAM DAILY;
     Dates: start: 20150317
  4. ACYCLOVIR. [Concomitant]
     Active Substance: ACYCLOVIR
     Indication: HERPES SIMPLEX
     Dosage: 800 MILLIGRAM DAILY;
     Dates: start: 1990
  5. FLUTICASONE [Concomitant]
     Active Substance: FLUTICASONE\FLUTICASONE PROPIONATE
     Indication: RHINITIS ALLERGIC
     Route: 045
     Dates: start: 2010
  6. ASPIRIN. [Concomitant]
     Active Substance: ASPIRIN
     Indication: CORONARY ARTERY DISEASE
     Dosage: 650 MILLIGRAM DAILY;
     Dates: start: 20150616
  7. FISH OIL [Concomitant]
     Active Substance: FISH OIL
     Indication: ARTERIOSCLEROSIS
     Dosage: 1000 MILLIGRAM DAILY;
     Dates: start: 2013
  8. WELLBUTRIN [Concomitant]
     Active Substance: BUPROPION HYDROCHLORIDE
     Indication: DEPRESSION
     Dosage: 150 MILLIGRAM DAILY;
     Dates: start: 201301
  9. LISINOPRIL. [Concomitant]
     Active Substance: LISINOPRIL
     Indication: HYPERTENSION
     Dosage: 2.5 MILLIGRAM DAILY;
     Dates: start: 20140823

REACTIONS (2)
  - Urticaria [Unknown]
  - Drug hypersensitivity [Unknown]

NARRATIVE: CASE EVENT DATE: 2001
